FAERS Safety Report 5317806-7 (Version None)
Quarter: 2007Q2

REPORT INFORMATION
  Report Type: 
  Country: None (occurrence: None)
  Receive Date: 20070507
  Receipt Date: 20070502
  Transmission Date: 20071010
  Serious: Yes (Life-Threatening, Hospitalization)
  Sender: FDA-Public Use
  Company Number: CA-BAYER-200615970GDS

PATIENT
  Age: 70 Year
  Sex: Female
  Weight: 45 kg

DRUGS (60)
  1. SORAFENIB [Suspect]
     Indication: NON-SMALL CELL LUNG CANCER
     Dosage: TOTAL DAILY DOSE: 400 MG
     Route: 048
     Dates: start: 20061114
  2. SORAFENIB [Suspect]
     Dosage: TOTAL DAILY DOSE: 400 MG
     Route: 048
     Dates: start: 20061014, end: 20061021
  3. SORAFENIB [Suspect]
     Dosage: TOTAL DAILY DOSE: 400 MG
     Route: 048
     Dates: start: 20060921, end: 20060927
  4. SORAFENIB [Suspect]
     Dosage: TOTAL DAILY DOSE: 400 MG
     Route: 048
     Dates: start: 20060825, end: 20060911
  5. CARBOPLATIN [Suspect]
     Indication: NON-SMALL CELL LUNG CANCER
     Route: 042
     Dates: start: 20060824, end: 20060824
  6. CARBOPLATIN [Suspect]
     Route: 042
     Dates: start: 20060920, end: 20060920
  7. CARBOPLATIN [Suspect]
     Route: 042
     Dates: start: 20061113, end: 20061113
  8. CARBOPLATIN [Suspect]
     Route: 042
     Dates: start: 20061013, end: 20061013
  9. PACLITAXEL [Suspect]
     Indication: NON-SMALL CELL LUNG CANCER
     Route: 042
     Dates: start: 20060920, end: 20060920
  10. PACLITAXEL [Suspect]
     Route: 042
     Dates: start: 20061113, end: 20061113
  11. PACLITAXEL [Suspect]
     Route: 042
     Dates: start: 20061013, end: 20061013
  12. PACLITAXEL [Suspect]
     Route: 042
     Dates: start: 20060824, end: 20060824
  13. FLUCONAZOLE [Concomitant]
     Indication: MUCOSAL INFLAMMATION
     Dosage: TOTAL DAILY DOSE: 150 MG
     Route: 048
     Dates: start: 20060906
  14. FENTANYL [Concomitant]
     Indication: PAIN
     Route: 061
     Dates: start: 20060906, end: 20061017
  15. FENTANYL [Concomitant]
     Route: 061
     Dates: start: 20061019, end: 20061019
  16. FENTANYL [Concomitant]
     Route: 061
     Dates: start: 20061018, end: 20061018
  17. ORAL PHOSPHODA [Concomitant]
     Indication: CONSTIPATION
     Route: 048
     Dates: start: 20060913
  18. OMEGA 3 WITH EPA [Concomitant]
     Indication: VITAMIN SUPPLEMENTATION
     Dosage: TOTAL DAILY DOSE: 1200 MG
     Route: 048
     Dates: start: 20060912
  19. STRESSTAB WITH ZINC AND COPPER [Concomitant]
     Indication: VITAMIN SUPPLEMENTATION
     Route: 048
     Dates: start: 20060912
  20. IMOVANE [Concomitant]
     Indication: INSOMNIA
     Route: 048
     Dates: start: 20060927, end: 20061017
  21. IMOVANE [Concomitant]
     Dosage: AS USED: 15 MG
     Route: 048
     Dates: start: 20061018
  22. IMOVANE [Concomitant]
     Route: 048
     Dates: start: 20060912, end: 20060926
  23. DECADRON [Concomitant]
     Indication: NAUSEA
     Dosage: TOTAL DAILY DOSE: 16 MG
     Route: 048
     Dates: start: 20061114, end: 20061115
  24. DECADRON [Concomitant]
     Dosage: TOTAL DAILY DOSE: 16 MG
     Route: 048
     Dates: start: 20060921, end: 20060922
  25. DECADRON [Concomitant]
     Dosage: TOTAL DAILY DOSE: 8 MG
     Route: 048
     Dates: start: 20060923, end: 20060924
  26. DECADRON [Concomitant]
     Dosage: AS USED: 20 MG
     Route: 048
     Dates: start: 20060919, end: 20060920
  27. DECADRON [Concomitant]
     Dosage: TOTAL DAILY DOSE: 8 MG
     Route: 048
     Dates: start: 20061116, end: 20061117
  28. DECADRON [Concomitant]
     Dosage: AS USED: 4 MG
     Route: 048
     Dates: start: 20061011
  29. DECADRON [Concomitant]
     Dosage: TOTAL DAILY DOSE: 8 MG
     Route: 048
     Dates: start: 20061015, end: 20061016
  30. DECADRON [Concomitant]
     Dosage: TOTAL DAILY DOSE: 16 MG
     Route: 048
     Dates: start: 20061013, end: 20061014
  31. DECADRON [Concomitant]
     Dosage: AS USED: 20 MG
     Route: 048
     Dates: start: 20061112, end: 20061113
  32. DECADRON [Concomitant]
     Dosage: AS USED: 20 MG
     Route: 048
     Dates: start: 20061011, end: 20061012
  33. BENADRYL [Concomitant]
     Indication: ALLERGY PROPHYLAXIS
     Dosage: TOTAL DAILY DOSE: 50 MG
     Route: 042
     Dates: start: 20061012, end: 20061012
  34. BENADRYL [Concomitant]
     Dosage: TOTAL DAILY DOSE: 50 MG
     Route: 042
     Dates: start: 20060920, end: 20060920
  35. BENADRYL [Concomitant]
     Dosage: TOTAL DAILY DOSE: 50 MG
     Route: 042
     Dates: start: 20061113, end: 20061113
  36. RANITIDINE [Concomitant]
     Indication: ALLERGY PROPHYLAXIS
     Dosage: TOTAL DAILY DOSE: 50 MG
     Route: 042
     Dates: start: 20061113, end: 20061113
  37. RANITIDINE [Concomitant]
     Dosage: TOTAL DAILY DOSE: 50 MG
     Route: 042
     Dates: start: 20060920, end: 20060920
  38. RANITIDINE [Concomitant]
     Dosage: TOTAL DAILY DOSE: 50 MG
     Route: 042
     Dates: start: 20061012, end: 20061012
  39. ZOFRAN [Concomitant]
     Indication: PROPHYLAXIS OF NAUSEA AND VOMITING
     Route: 042
     Dates: start: 20061113, end: 20061113
  40. ZOFRAN [Concomitant]
     Route: 042
     Dates: start: 20061012, end: 20061012
  41. ZOFRAN [Concomitant]
     Route: 042
     Dates: start: 20060920, end: 20060920
  42. MYCOSTATIN [Concomitant]
     Indication: MUCOSAL INFLAMMATION
     Dosage: TOTAL DAILY DOSE: 2 MIU
     Route: 048
     Dates: start: 20060913
  43. EPREX [Concomitant]
     Indication: ANAEMIA
     Route: 058
     Dates: start: 20060913, end: 20061011
  44. EPREX [Concomitant]
     Route: 058
     Dates: start: 20061106
  45. EPREX [Concomitant]
     Route: 058
     Dates: start: 20061101
  46. FERROUS FUMARATE [Concomitant]
     Indication: ANAEMIA
     Dosage: TOTAL DAILY DOSE: 300 MG
     Route: 048
     Dates: start: 20061106
  47. FERROUS FUMARATE [Concomitant]
     Dosage: TOTAL DAILY DOSE: 300 MG
     Route: 048
     Dates: start: 20060913
  48. BLOOD TRANSFUSION [Concomitant]
     Indication: ANAEMIA
     Route: 042
     Dates: start: 20061011, end: 20061011
  49. BAGBAUM CREAM [Concomitant]
     Indication: DRUG USE FOR UNKNOWN INDICATION
     Route: 061
     Dates: start: 20061101
  50. SENEKOT S [Concomitant]
     Indication: CONSTIPATION
     Dosage: TOTAL DAILY DOSE: 51.6 MG  UNIT DOSE: 8.6 MG
     Route: 048
     Dates: start: 20060710
  51. SENEKOT S [Concomitant]
     Route: 048
     Dates: start: 20061018
  52. DULCOLAX [Concomitant]
     Indication: CONSTIPATION
     Dosage: TOTAL DAILY DOSE: 20 MG
     Route: 048
     Dates: start: 20060710
  53. DULCOLAX [Concomitant]
     Dosage: TOTAL DAILY DOSE: 10 MG
     Route: 048
     Dates: start: 20061018
  54. ALEVE [Concomitant]
     Indication: DRUG USE FOR UNKNOWN INDICATION
     Dosage: TOTAL DAILY DOSE: 1600 MG
     Route: 048
     Dates: start: 20061101
  55. STATEX [Concomitant]
     Indication: CHEST PAIN
     Route: 048
     Dates: start: 20060816
  56. PROCHLORPERAZINE [Concomitant]
     Indication: PROPHYLAXIS OF NAUSEA AND VOMITING
     Dosage: TOTAL DAILY DOSE: 60 MG
     Route: 048
     Dates: start: 20060823
  57. MAXERAN [Concomitant]
     Indication: PROPHYLAXIS OF NAUSEA AND VOMITING
     Dosage: TOTAL DAILY DOSE: 80 MG
     Route: 048
     Dates: start: 20060823
  58. IBUPROFEN [Concomitant]
     Indication: ABDOMINAL PAIN UPPER
     Dosage: UNIT DOSE: 400 MG
     Route: 048
     Dates: start: 20060710
  59. PAMIDRONATE DISODIUM [Concomitant]
     Indication: BONE DISORDER
     Route: 042
     Dates: start: 20060724
  60. PANTALOC [Concomitant]
     Indication: DYSPEPSIA
     Dosage: TOTAL DAILY DOSE: 40 MG
     Route: 048
     Dates: start: 20060710

REACTIONS (13)
  - CHILLS [None]
  - DECREASED APPETITE [None]
  - FATIGUE [None]
  - HYPOKALAEMIA [None]
  - HYPOMAGNESAEMIA [None]
  - HYPOTENSION [None]
  - LISTERIA SEPSIS [None]
  - MENTAL STATUS CHANGES [None]
  - NAUSEA [None]
  - NEUTROPENIA [None]
  - PYREXIA [None]
  - TACHYCARDIA [None]
  - VOMITING [None]
